FAERS Safety Report 6917611-1 (Version None)
Quarter: 2010Q3

REPORT INFORMATION
  Report Type: 
  Country: None (occurrence: None)
  Receive Date: 20100810
  Receipt Date: 20100803
  Transmission Date: 20110219
  Serious: Yes (Hospitalization)
  Sender: FDA-Public Use
  Company Number: CH-JNJCH-2007068255

PATIENT
  Sex: Female

DRUGS (6)
  1. ZYRTEC [Suspect]
     Route: 048
     Dates: start: 20061117, end: 20061117
  2. NEURONTIN [Suspect]
     Route: 048
     Dates: start: 20061117, end: 20061117
  3. PREDNISONE [Suspect]
     Route: 048
     Dates: start: 20061117, end: 20061117
  4. PARACETAMOL [Suspect]
     Route: 048
     Dates: start: 20061117, end: 20061117
  5. CITALOPRAM HYDROBROMIDE [Suspect]
     Route: 048
     Dates: start: 20061117, end: 20061117
  6. ECOFENAC [Suspect]
     Route: 048
     Dates: start: 20061117, end: 20061117

REACTIONS (1)
  - NO ADVERSE EVENT [None]
